FAERS Safety Report 16586365 (Version 1)
Quarter: 2019Q3

REPORT INFORMATION
  Report Type: Spontaneous
  Country: PL (occurrence: PL)
  Receive Date: 20190717
  Receipt Date: 20190717
  Transmission Date: 20191004
  Serious: Yes (Hospitalization)
  Sender: FDA-Public Use
  Company Number: PL-TEVA-2019-PL-1079863

PATIENT
  Age: 67 Year
  Sex: Male
  Weight: 82 kg

DRUGS (3)
  1. NAVIREL [Suspect]
     Active Substance: VINORELBINE TARTRATE
     Indication: RESPIRATORY TRACT NEOPLASM
     Route: 042
     Dates: start: 20160706, end: 20160706
  2. CARBOPLATIN ACCORD [Suspect]
     Active Substance: CARBOPLATIN
     Indication: RESPIRATORY TRACT NEOPLASM
     Route: 042
     Dates: start: 20160706, end: 20160706
  3. TEVAGRASTIM [Suspect]
     Active Substance: FILGRASTIM
     Indication: RESPIRATORY TRACT NEOPLASM
     Dates: start: 20160706, end: 20160706

REACTIONS (2)
  - Neutropenia [Recovering/Resolving]
  - Leukopenia [Recovering/Resolving]

NARRATIVE: CASE EVENT DATE: 20160713
